FAERS Safety Report 10501113 (Version 1)
Quarter: 2014Q4

REPORT INFORMATION
  Report Type: Report from Study
  Country: ZA (occurrence: ZA)
  Receive Date: 20141007
  Receipt Date: 20141007
  Transmission Date: 20150528
  Serious: Yes (Death, Hospitalization)
  Sender: FDA-Public Use
  Company Number: ZA-ROCHE-1469668

PATIENT
  Sex: Male

DRUGS (1)
  1. MIRCERA [Suspect]
     Active Substance: PEGZEREPOETIN ALFA
     Indication: NEPHROGENIC ANAEMIA
     Route: 058
     Dates: start: 201407, end: 201409

REACTIONS (5)
  - Intracranial tumour haemorrhage [Unknown]
  - Headache [Unknown]
  - Cerebrovascular accident [Unknown]
  - Circulatory collapse [Unknown]
  - Death [Fatal]
